FAERS Safety Report 6873135-1 (Version None)
Quarter: 2010Q3

REPORT INFORMATION
  Report Type: 
  Country: None (occurrence: None)
  Receive Date: 20100723
  Receipt Date: 20091123
  Transmission Date: 20110219
  Serious: No
  Sender: FDA-Public Use
  Company Number: US-PFIZER INC-2008082036

PATIENT
  Sex: Male
  Weight: 65.8 kg

DRUGS (17)
  1. CHANTIX [Suspect]
     Indication: SMOKING CESSATION THERAPY
     Dosage: 1 MG, 2X/DAY
     Dates: start: 20080901, end: 20081011
  2. CHANTIX [Suspect]
     Dates: start: 20070101, end: 20070101
  3. LIPITOR [Concomitant]
     Dosage: UNK
  4. ZETIA [Concomitant]
     Dosage: UNK
  5. CEPHALEXIN [Concomitant]
     Dosage: UNK
  6. UROXATRAL [Concomitant]
     Dosage: UNK
  7. WARFARIN SODIUM [Concomitant]
     Dosage: UNK
  8. DILTIAZEM [Concomitant]
     Dosage: UNK
  9. ARICEPT [Concomitant]
     Indication: MEMORY IMPAIRMENT
     Dosage: UNK
  10. COUMADIN [Concomitant]
     Dosage: UNK
  11. AMIODARONE HCL [Concomitant]
     Indication: HYPERTENSION
     Dosage: UNK
  12. KLONOPIN [Concomitant]
     Dosage: UNK
  13. NITROFURANTOIN [Concomitant]
     Dosage: UNK
  14. ATIVAN [Concomitant]
     Dosage: UNK
  15. ADVAIR DISKUS 100/50 [Concomitant]
     Dosage: UNK
  16. SPIRIVA [Concomitant]
     Dosage: UNK
  17. ZOLOFT [Concomitant]
     Dosage: UNK

REACTIONS (6)
  - ASTHENIA [None]
  - CHILLS [None]
  - DEPRESSION [None]
  - MALAISE [None]
  - MENTAL DISORDER [None]
  - TREMOR [None]
